FAERS Safety Report 10744661 (Version 1)
Quarter: 2015Q1

REPORT INFORMATION
  Report Type: Spontaneous
  Country: US (occurrence: None)
  Receive Date: 20150126
  Receipt Date: 20150126
  Transmission Date: 20150721
  Serious: Yes (Hospitalization, Other)
  Sender: FDA-Public Use
  Company Number: ADR-2014-01702

PATIENT
  Age: 55 Year
  Sex: Male

DRUGS (2)
  1. LIORESAL [Suspect]
     Active Substance: BACLOFEN
     Indication: MUSCLE RIGIDITY
  2. LIORESAL [Suspect]
     Active Substance: BACLOFEN
     Indication: CLONUS

REACTIONS (7)
  - No therapeutic response [None]
  - Clonus [None]
  - Infection [None]
  - Muscle rigidity [None]
  - Condition aggravated [None]
  - Unresponsive to stimuli [None]
  - Movement disorder [None]

NARRATIVE: CASE EVENT DATE: 20140906
